FAERS Safety Report 10501187 (Version 1)
Quarter: 2014Q4

REPORT INFORMATION
  Report Type: Spontaneous
  Country: US (occurrence: None)
  Receive Date: 20141006
  Receipt Date: 20141006
  Transmission Date: 20150528
  Serious: Yes (Disabling)
  Sender: FDA-Public Use
  Company Number: None

PATIENT
  Age: 62 Year
  Sex: Male
  Weight: 116.12 kg

DRUGS (2)
  1. MODAFINIL. [Suspect]
     Active Substance: MODAFINIL
     Indication: SLEEP APNOEA SYNDROME
     Dates: start: 20140903, end: 20141002
  2. MODAFINIL. [Suspect]
     Active Substance: MODAFINIL
     Indication: POOR QUALITY SLEEP
     Dates: start: 20140903, end: 20141002

REACTIONS (6)
  - Lethargy [None]
  - Sense of oppression [None]
  - Malaise [None]
  - Apathy [None]
  - Headache [None]
  - Product substitution issue [None]
